FAERS Safety Report 24789549 (Version 1)
Quarter: 2025Q1

REPORT INFORMATION
  Report Type: Spontaneous
  Country: US (occurrence: US)
  Receive Date: 20241230
  Receipt Date: 20241230
  Transmission Date: 20250408
  Serious: Yes (Death, Hospitalization, Other)
  Sender: Haleon PLC
  Company Number: US-HALEON-2217856

PATIENT
  Age: 23 Year
  Sex: Female

DRUGS (20)
  1. ACETAMINOPHEN [Suspect]
     Active Substance: ACETAMINOPHEN
     Indication: Product used for unknown indication
     Route: 048
  2. IBUPROFEN [Suspect]
     Active Substance: IBUPROFEN
     Indication: Product used for unknown indication
     Route: 048
  3. ISOPROPYL ALCOHOL [Suspect]
     Active Substance: ISOPROPYL ALCOHOL
     Indication: Product used for unknown indication
     Route: 048
  4. BLACK PEPPER [Suspect]
     Active Substance: BLACK PEPPER
     Indication: Product used for unknown indication
     Route: 048
  5. MIDAZOLAM [Suspect]
     Active Substance: MIDAZOLAM
     Indication: Aspiration
  6. FOMEPIZOLE [Suspect]
     Active Substance: FOMEPIZOLE
     Indication: Aspiration
  7. CEFTRIAXONE [Suspect]
     Active Substance: CEFTRIAXONE
     Indication: Aspiration
  8. SODIUM BICARBONATE [Suspect]
     Active Substance: SODIUM BICARBONATE
     Indication: Acidosis
  9. NOREPINEPHRINE [Suspect]
     Active Substance: NOREPINEPHRINE
     Indication: Hypotension
  10. NOREPINEPHRINE [Suspect]
     Active Substance: NOREPINEPHRINE
     Indication: Shock
  11. VASOPRESSIN [Suspect]
     Active Substance: VASOPRESSIN
     Indication: Hypotension
  12. VASOPRESSIN [Suspect]
     Active Substance: VASOPRESSIN
     Indication: Shock
  13. PHENYLEPHRINE [Suspect]
     Active Substance: PHENYLEPHRINE
     Indication: Shock
  14. EPINEPHRINE [Suspect]
     Active Substance: EPINEPHRINE
     Indication: Shock
  15. ANGIOTENSIN II [Suspect]
     Active Substance: ANGIOTENSIN II
     Indication: Shock
  16. LORAZEPAM [Suspect]
     Active Substance: LORAZEPAM
     Indication: Seizure
  17. LEVETIRACETAM [Suspect]
     Active Substance: LEVETIRACETAM
     Indication: Seizure
  18. DEXMEDETOMIDINE [Suspect]
     Active Substance: DEXMEDETOMIDINE
     Indication: Sedation
  19. PROPOFOL [Suspect]
     Active Substance: PROPOFOL
     Indication: Sedation
  20. VITAMIN K [Suspect]
     Active Substance: PHYTONADIONE
     Indication: Product used for unknown indication

REACTIONS (2)
  - Suspected suicide [Fatal]
  - Exposure during pregnancy [Unknown]
